FAERS Safety Report 14534401 (Version 1)
Quarter: 2018Q1

REPORT INFORMATION
  Report Type: Spontaneous
  Country: US (occurrence: US)
  Receive Date: 20180215
  Receipt Date: 20180215
  Transmission Date: 20180509
  Serious: No
  Sender: FDA-Public Use
  Company Number: US-TEVA-2018-US-849244

PATIENT
  Sex: Female

DRUGS (1)
  1. CLONAZEPAM. [Suspect]
     Active Substance: CLONAZEPAM
     Indication: PANIC ATTACK
     Dosage: 0.25 (HALF TABLET OF 0.5 MG TABLET) PER DAY BUT SOME DAYS TOOK 2 HALVES, FOR A TOTAL OF 0.5 MG
     Route: 065

REACTIONS (4)
  - Dyspnoea [Unknown]
  - Nervousness [Unknown]
  - Speech disorder [Unknown]
  - Wrong technique in product usage process [Unknown]
